FAERS Safety Report 5116273-6 (Version None)
Quarter: 2006Q3

REPORT INFORMATION
  Report Type: 
  Country: None (occurrence: None)
  Receive Date: 20060925
  Receipt Date: 20060907
  Transmission Date: 20061208
  Serious: Yes (Death)
  Sender: FDA-Public Use
  Company Number: P200600003

PATIENT
  Age: 87 Year
  Sex: Male
  Weight: 59.4 kg

DRUGS (6)
  1. PLENAXIS [Suspect]
     Indication: PROSTATE CANCER
     Dosage: 100 MG, SINGLE, INTRAMUSCULAR
     Route: 030
     Dates: start: 20050329, end: 20050329
  2. PLENAXIS [Suspect]
     Indication: PROSTATE CANCER
     Dosage: 100 MG, SINGLE, INTRAMUSCULAR
     Route: 030
     Dates: start: 20050414, end: 20050414
  3. PLENAXIS [Suspect]
     Indication: PROSTATE CANCER
     Dosage: 100 MG, SINGLE, INTRAMUSCULAR
     Route: 030
     Dates: start: 20050429, end: 20050429
  4. PROTONIX [Concomitant]
  5. DAPSONE [Concomitant]
  6. MULTI-VIT (VITAMINS NOS) [Concomitant]

REACTIONS (1)
  - DISEASE PROGRESSION [None]
